FAERS Safety Report 20863194 (Version 2)
Quarter: 2022Q2

REPORT INFORMATION
  Report Type: Spontaneous
  Country: US (occurrence: US)
  Receive Date: 20220523
  Receipt Date: 20220524
  Transmission Date: 20220721
  Serious: Yes (Other)
  Sender: FDA-Public Use
  Company Number: US-PFIZER INC-202200720996

PATIENT
  Age: 77 Year
  Sex: Female
  Weight: 95.25 kg

DRUGS (2)
  1. FLAGYL [Suspect]
     Active Substance: METRONIDAZOLE\METRONIDAZOLE HYDROCHLORIDE
     Indication: Bacterial infection
     Dosage: UNK
  2. METRONIDAZOLE [Suspect]
     Active Substance: METRONIDAZOLE
     Dosage: UNK

REACTIONS (5)
  - Optic neuropathy [Unknown]
  - Exfoliation glaucoma [Unknown]
  - Photosensitivity reaction [Unknown]
  - Photophobia [Unknown]
  - Fungal infection [Unknown]
